FAERS Safety Report 8828630 (Version 5)
Quarter: 2012Q4

REPORT INFORMATION
  Report Type: 
  Country: AR (occurrence: AR)
  Receive Date: 20121005
  Receipt Date: 20121203
  Transmission Date: 20130627
  Serious: Yes (Hospitalization)
  Sender: FDA-Public Use
  Company Number: AR-GENZYME-CERZ-1002660

PATIENT
  Sex: Male

DRUGS (1)
  1. CEREZYME [Suspect]
     Indication: GAUCHER^S DISEASE
     Dosage: UNK

REACTIONS (3)
  - American trypanosomiasis [Unknown]
  - Urethral stenosis [Unknown]
  - Cystitis [Unknown]
